FAERS Safety Report 6433224-2 (Version None)
Quarter: 2009Q4

REPORT INFORMATION
  Report Type: 
  Country: None (occurrence: None)
  Receive Date: 20091105
  Receipt Date: 20091027
  Transmission Date: 20100525
  Serious: Yes (Hospitalization)
  Sender: FDA-Public Use
  Company Number: 2009AL006858

PATIENT
  Age: 12 Year
  Sex: Female

DRUGS (1)
  1. CARBAMAZEPINE [Suspect]
     Indication: ELECTROENCEPHALOGRAM ABNORMAL

REACTIONS (6)
  - DISEASE RECURRENCE [None]
  - DRUG INTOLERANCE [None]
  - DRUG RASH WITH EOSINOPHILIA AND SYSTEMIC SYMPTOMS [None]
  - HERPES VIRUS INFECTION [None]
  - HUMAN HERPES VIRUS 6 SEROLOGY POSITIVE [None]
  - LYMPHOPENIA [None]
